FAERS Safety Report 7617054-1 (Version None)
Quarter: 2011Q3

REPORT INFORMATION
  Report Type: 
  Country: None (occurrence: None)
  Receive Date: 20110718
  Receipt Date: 20110201
  Transmission Date: 20111222
  Serious: Yes (Death, Hospitalization, Other)
  Sender: FDA-Public Use
  Company Number: US-BAYER-201015774NA

PATIENT
  Age: 55 Year
  Sex: Female
  Weight: 77.551 kg

DRUGS (29)
  1. TRASYLOL [Suspect]
     Indication: CORONARY ARTERY BYPASS
  2. LIPITOR [Concomitant]
  3. SODIUM BICARBONATE [Concomitant]
     Dosage: UNK
     Route: 042
     Dates: start: 20071009, end: 20071009
  4. CALCIUM CHLORIDE [Concomitant]
     Dosage: 1 G, UNK
     Route: 042
     Dates: start: 20071009, end: 20071009
  5. NITROGLYCERIN [Concomitant]
     Dosage: TITRATED DRIP
     Route: 042
     Dates: start: 20071009, end: 20071009
  6. AMIODARONE HCL [Concomitant]
     Dosage: 300 MG, UNK
     Route: 042
     Dates: start: 20071009, end: 20071009
  7. PAPAVERINE [Concomitant]
     Dosage: 60 MG, UNK
     Route: 042
     Dates: start: 20071009, end: 20071009
  8. POTASSIUM CHLORIDE [Concomitant]
     Dosage: 10 MEQ, UNK
     Route: 042
     Dates: start: 20071009, end: 20071009
  9. TRASYLOL [Suspect]
     Indication: AORTIC VALVE REPAIR
  10. PLAVIX [Concomitant]
  11. PROTAMINE SULFATE [Concomitant]
     Dosage: 100 MG, UNK
     Route: 042
     Dates: start: 20071009, end: 20071009
  12. FENTANYL-100 [Concomitant]
     Dosage: TITRATED DRIP
     Route: 042
     Dates: start: 20071009, end: 20071009
  13. TRASYLOL [Suspect]
     Indication: CARDIAC OPERATION
     Dosage: 2 ML (TEST DOSE 08:42)
     Route: 042
     Dates: start: 20071009, end: 20071009
  14. PERCOCET [Concomitant]
  15. VANCOMYCIN [Concomitant]
     Dosage: 1 G, UNK
     Route: 042
     Dates: start: 20071009, end: 20071009
  16. MAGNESIUM SULFATE [Concomitant]
     Dosage: UNK
     Route: 042
     Dates: start: 20071009, end: 20071009
  17. EPINEPHRINE [Concomitant]
     Dosage: TITRATED DRIP
     Route: 042
     Dates: start: 20071009, end: 20071009
  18. ETOMIDATE [Concomitant]
     Dosage: 18 MG, UNK
     Route: 042
     Dates: start: 20071009, end: 20071009
  19. TRASYLOL [Suspect]
     Indication: STERNOTOMY
  20. LIDOCAINE [Concomitant]
     Dosage: TITRATED DRIP
     Route: 042
     Dates: start: 20071009, end: 20071009
  21. INSULIN [Concomitant]
     Dosage: TITRATED DRIP
     Route: 042
     Dates: start: 20071009, end: 20071009
  22. ESMOLOL [Concomitant]
     Dosage: 20 MG, UNK
     Route: 042
     Dates: start: 20071009, end: 20071009
  23. MILRINONE [Concomitant]
     Dosage: 3 MG AND TITRATED DRIP
     Route: 042
     Dates: start: 20071009, end: 20071009
  24. TRASYLOL [Suspect]
     Indication: AORTIC SURGERY
     Dosage: 50 CC/HR DRIP
     Route: 042
     Dates: start: 20071009, end: 20071009
  25. METOPROLOL RETARD [Concomitant]
  26. LEVOPHED [Concomitant]
     Dosage: TITRATED DRIP
     Route: 042
     Dates: start: 20071009, end: 20071009
  27. ANCEF [Concomitant]
     Dosage: 3 G, UNK
     Dates: start: 20071009, end: 20071009
  28. HEPARIN [Concomitant]
     Dosage: 24,000 U, UNK
     Route: 042
     Dates: start: 20071009, end: 20071009
  29. VECURONIUM BROMIDE [Concomitant]
     Dosage: 1 MG, UNK
     Route: 042
     Dates: start: 20071009, end: 20071009

REACTIONS (5)
  - RENAL FAILURE [None]
  - DEATH [None]
  - MYOCARDIAL INFARCTION [None]
  - INJURY [None]
  - CEREBROVASCULAR ACCIDENT [None]
